FAERS Safety Report 25519382 (Version 1)
Quarter: 2025Q3

REPORT INFORMATION
  Report Type: Report from Study
  Country: US (occurrence: US)
  Receive Date: 20250704
  Receipt Date: 20250704
  Transmission Date: 20251021
  Serious: Yes (Other)
  Sender: EXELIXIS
  Company Number: US-EXELIXIS-EXL-2025-008656

PATIENT
  Age: 22 Year
  Sex: Male

DRUGS (7)
  1. CABOMETYX [Suspect]
     Active Substance: CABOZANTINIB S-MALATE
     Indication: Osteosarcoma metastatic
     Dosage: 60 MG, QOD
     Route: 048
     Dates: start: 20241127
  2. CABOMETYX [Suspect]
     Active Substance: CABOZANTINIB S-MALATE
     Indication: Osteosarcoma recurrent
     Dosage: 60 MG, QD
     Route: 048
     Dates: start: 20241212, end: 20250617
  3. VITAMIN D3 [Concomitant]
     Active Substance: CHOLECALCIFEROL
  4. EMLA [Concomitant]
     Active Substance: LIDOCAINE\PRILOCAINE
     Indication: Hypoaesthesia
  5. ZESTRIL [Concomitant]
     Active Substance: LISINOPRIL
  6. ROXICODONE [Concomitant]
     Active Substance: OXYCODONE HYDROCHLORIDE
     Indication: Pain
  7. STIVARGA [Concomitant]
     Active Substance: REGORAFENIB MONOHYDRATE

REACTIONS (17)
  - Pleural effusion [Unknown]
  - Pancytopenia [Unknown]
  - Pneumothorax [Unknown]
  - Central venous catheterisation [Unknown]
  - Malignant neoplasm progression [Unknown]
  - Thyroid disorder [Recovering/Resolving]
  - Diarrhoea [Recovering/Resolving]
  - Palmar-plantar erythrodysaesthesia syndrome [Unknown]
  - Nausea [Recovered/Resolved]
  - Vomiting [Recovered/Resolved]
  - Pulmonary mass [Unknown]
  - Pleural fibrosis [Unknown]
  - Peripheral swelling [Unknown]
  - Intervertebral disc disorder [Unknown]
  - Tumour pain [Unknown]
  - Procedural pain [Unknown]
  - Off label use [Unknown]

NARRATIVE: CASE EVENT DATE: 20250606
